FAERS Safety Report 24585190 (Version 1)
Quarter: 2024Q4

REPORT INFORMATION
  Report Type: Spontaneous
  Country: US (occurrence: US)
  Receive Date: 20241106
  Receipt Date: 20241106
  Transmission Date: 20250115
  Serious: No
  Sender: PFIZER
  Company Number: US-PFIZER INC-202400256558

PATIENT
  Age: 70 Year
  Sex: Female

DRUGS (1)
  1. TUKYSA [Suspect]
     Active Substance: TUCATINIB
     Indication: Breast cancer female
     Dosage: 300 MG (2 TABLETS OF 150 MG), 2X/DAY
     Route: 048

REACTIONS (3)
  - Nerve injury [Unknown]
  - Stomatitis [Unknown]
  - Off label use [Unknown]
